FAERS Safety Report 8791701 (Version 1)
Quarter: 2012Q4

REPORT INFORMATION
  Report Type: 
  Country: GB (occurrence: GB)
  Receive Date: 20120918
  Receipt Date: 20120918
  Transmission Date: 20130627
  Serious: Yes (Death)
  Sender: FDA-Public Use
  Company Number: PHHY2012GB080245

PATIENT
  Age: 59 Year
  Sex: Female

DRUGS (4)
  1. CICLOSPORIN [Suspect]
     Indication: PROPHYLAXIS AGAINST GRAFT VERSUS HOST DISEASE
  2. MYCOPHENOLATE MOFETIL [Suspect]
     Indication: PROPHYLAXIS AGAINST GRAFT VERSUS HOST DISEASE
  3. ACICLOVIR [Concomitant]
     Indication: ANTIBIOTIC PROPHYLAXIS
  4. CIDOFOVIR [Concomitant]
     Indication: ADENOVIRUS INFECTION

REACTIONS (4)
  - Cardiac arrest [Fatal]
  - Cytomegalovirus viraemia [Fatal]
  - Adenovirus infection [Fatal]
  - Pneumonitis [Fatal]
